FAERS Safety Report 4542114-1 (Version None)
Quarter: 2004Q4

REPORT INFORMATION
  Report Type: 
  Country: None (occurrence: None)
  Receive Date: 20041227
  Receipt Date: 20041215
  Transmission Date: 20050328
  Serious: Yes (Hospitalization, Other)
  Sender: FDA-Public Use
  Company Number: 2004112741

PATIENT
  Sex: Female

DRUGS (5)
  1. LIPITOR [Suspect]
     Indication: LIPIDS INCREASED
     Dosage: 40 MG (40 MG, 1 IN 1 D), ORAL
     Route: 048
  2. FENOFIBRATE [Suspect]
     Indication: BLOOD TRIGLYCERIDES
     Dosage: ORAL
     Route: 048
  3. VALSARTAN [Concomitant]
  4. REPAGLINIDE [Concomitant]
  5. FUROSEMIDE [Concomitant]

REACTIONS (2)
  - GASTROENTERITIS [None]
  - RENAL FAILURE [None]
